FAERS Safety Report 7559590-2 (Version None)
Quarter: 2011Q2

REPORT INFORMATION
  Report Type: 
  Country: None (occurrence: None)
  Receive Date: 20110621
  Receipt Date: 20110616
  Transmission Date: 20111010
  Serious: Yes (Hospitalization, Other)
  Sender: FDA-Public Use
  Company Number: US-PFIZER INC-2009262086

PATIENT
  Sex: Male

DRUGS (1)
  1. CHANTIX [Suspect]
     Indication: SMOKING CESSATION THERAPY
     Dosage: 1 MG, UNK
     Dates: start: 20070702, end: 20071025

REACTIONS (5)
  - BIPOLAR DISORDER [None]
  - SUICIDAL BEHAVIOUR [None]
  - ANXIETY [None]
  - PANIC ATTACK [None]
  - DEPRESSION [None]
